FAERS Safety Report 6967295-1 (Version None)
Quarter: 2010Q3

REPORT INFORMATION
  Report Type: 
  Country: None (occurrence: None)
  Receive Date: 20100907
  Receipt Date: 20100827
  Transmission Date: 20110219
  Serious: Yes (Hospitalization, Other)
  Sender: FDA-Public Use
  Company Number: US-BAYER-201016593NA

PATIENT
  Age: 27 Year
  Sex: Female
  Weight: 71 kg

DRUGS (6)
  1. YASMIN [Suspect]
     Indication: CONTRACEPTION
     Route: 048
     Dates: start: 20070301, end: 20090301
  2. OCELLA [Suspect]
     Indication: CONTRACEPTION
     Route: 048
     Dates: start: 20070301, end: 20090301
  3. VENTOLIN HFA [Concomitant]
     Dosage: AS NEEDED SINCE CHILDHOOD
  4. IBUPROFEN [Concomitant]
     Dosage: VARIOUS DATES SINCE BEFORE 2000
  5. ALBUTEROL SULATE [Concomitant]
  6. SYNTHROID [Concomitant]

REACTIONS (9)
  - ABDOMINAL PAIN [None]
  - ABDOMINAL PAIN UPPER [None]
  - BILIARY COLIC [None]
  - BILIARY DYSKINESIA [None]
  - CHEST PAIN [None]
  - COLD SWEAT [None]
  - CONSTIPATION [None]
  - HYPERHIDROSIS [None]
  - NAUSEA [None]
